FAERS Safety Report 8756875 (Version 1)
Quarter: 2012Q4

REPORT INFORMATION
  Report Type: 
  Country: US (occurrence: US)
  Receive Date: 20120828
  Receipt Date: 20120828
  Transmission Date: 20130627
  Serious: Yes (Hospitalization, Other)
  Sender: FDA-Public Use
  Company Number: US-BAYER-2012-086886

PATIENT
  Age: 30 Year
  Sex: Female
  Weight: 87.98 kg

DRUGS (11)
  1. YAZ [Suspect]
  2. GIANVI [Suspect]
  3. ACETAMINOPHEN W/OXYCODONE [Concomitant]
  4. CLINDAMYCIN [Concomitant]
     Dosage: 150 mg, UNK
  5. OTHER ANTIDEPRESSANTS [Concomitant]
     Dosage: 10 mg, daily
  6. PROAIR HFA [Concomitant]
     Dosage: 90 mcg/inh (interpreted as inhalation) prn (as needed)
  7. ABILIFY [Concomitant]
     Dosage: 5 mg, daily
     Route: 048
  8. TRAMADOL [Concomitant]
     Dosage: 100 mg, QID
     Route: 048
  9. KLONOPIN [Concomitant]
     Dosage: 1 mg, 5ID
     Route: 048
  10. METHADONE [Concomitant]
     Dosage: 80 mg,daily
     Route: 048
  11. COLACE [Concomitant]

REACTIONS (2)
  - Pulmonary embolism [None]
  - Deep vein thrombosis [None]
